FAERS Safety Report 12218795 (Version 1)
Quarter: 2016Q1

REPORT INFORMATION
  Report Type: Spontaneous
  Country: US (occurrence: US)
  Receive Date: 20160329
  Receipt Date: 20160329
  Transmission Date: 20160526
  Serious: Yes (Hospitalization)
  Sender: FDA-Public Use
  Company Number: US-B.I. PHARMACEUTICALS,INC./RIDGEFIELD-2016-BI-14918PF

PATIENT
  Sex: Female
  Weight: 85.73 kg

DRUGS (4)
  1. SPIRIVA [Suspect]
     Active Substance: TIOTROPIUM BROMIDE MONOHYDRATE
     Indication: DYSPNOEA
     Route: 065
  2. ADVIL ALLERGY AND CONGESTION RELIEF [Concomitant]
     Active Substance: CHLORPHENIRAMINE MALEATE\IBUPROFEN\PHENYLEPHRINE HYDROCHLORIDE
     Indication: UPPER RESPIRATORY TRACT CONGESTION
     Dosage: 4 ANZ
     Route: 048
  3. ADVIL ALLERGY AND CONGESTION RELIEF [Concomitant]
     Active Substance: CHLORPHENIRAMINE MALEATE\IBUPROFEN\PHENYLEPHRINE HYDROCHLORIDE
     Indication: NASAL CONGESTION
  4. ADVIL ALLERGY AND CONGESTION RELIEF [Concomitant]
     Active Substance: CHLORPHENIRAMINE MALEATE\IBUPROFEN\PHENYLEPHRINE HYDROCHLORIDE
     Indication: DYSPNOEA

REACTIONS (3)
  - Vomiting [Unknown]
  - Dyspnoea [Unknown]
  - Abdominal pain upper [Unknown]
